FAERS Safety Report 10496268 (Version 2)
Quarter: 2014Q4

REPORT INFORMATION
  Report Type: Spontaneous
  Country: US (occurrence: US)
  Receive Date: 20141003
  Receipt Date: 20141107
  Transmission Date: 20150528
  Serious: No
  Sender: FDA-Public Use
  Company Number: US-FRI-1000071143

PATIENT
  Age: 92 Year
  Sex: Female

DRUGS (3)
  1. NAMENDA XR [Suspect]
     Active Substance: MEMANTINE HYDROCHLORIDE
     Indication: DEMENTIA WITH LEWY BODIES
     Dosage: 14 MG
     Route: 048
     Dates: start: 201406, end: 20140930
  2. REMERON [Concomitant]
     Active Substance: MIRTAZAPINE
     Dosage: 22.5 MG
  3. EXELON [Concomitant]
     Active Substance: RIVASTIGMINE TARTRATE
     Dosage: 4.6 MG

REACTIONS (5)
  - Insomnia [Recovered/Resolved]
  - Delusion [Recovered/Resolved]
  - Dementia [Recovered/Resolved]
  - Off label use [Recovered/Resolved]
  - Hallucination [Recovered/Resolved]

NARRATIVE: CASE EVENT DATE: 2014
